FAERS Safety Report 25184816 (Version 1)
Quarter: 2025Q2

REPORT INFORMATION
  Report Type: Spontaneous
  Country: FR (occurrence: FR)
  Receive Date: 20250410
  Receipt Date: 20250410
  Transmission Date: 20250717
  Serious: Yes (Other)
  Sender: AMERICAN REGENT
  Company Number: FR-AMERICAN REGENT INC-2025001466

PATIENT
  Age: 93 Year
  Sex: Female
  Weight: 60 kg

DRUGS (5)
  1. VENOFER [Suspect]
     Active Substance: IRON SUCROSE
     Indication: Blood iron decreased
     Route: 042
     Dates: start: 20250307, end: 20250307
  2. COLCHICINE [Suspect]
     Active Substance: COLCHICINE
     Indication: Arthralgia
     Route: 065
     Dates: start: 20250306, end: 20250310
  3. COLCHICINE [Suspect]
     Active Substance: COLCHICINE
     Indication: Arthritis
  4. DAPAGLIFLOZIN [Suspect]
     Active Substance: DAPAGLIFLOZIN
     Indication: Cardiac failure
     Route: 065
     Dates: start: 20250227, end: 20250302
  5. ELIQUIS [Suspect]
     Active Substance: APIXABAN
     Indication: Product used for unknown indication
     Route: 065

REACTIONS (1)
  - Hepatic cytolysis [Not Recovered/Not Resolved]

NARRATIVE: CASE EVENT DATE: 20250311
